FAERS Safety Report 10701714 (Version 3)
Quarter: 2015Q2

REPORT INFORMATION
  Report Type: Report from Study
  Country: CA (occurrence: CA)
  Receive Date: 20150109
  Receipt Date: 20150427
  Transmission Date: 20150821
  Serious: Yes (Disabling, Other)
  Sender: FDA-Public Use
  Company Number: PHHY2014CA077824

PATIENT
  Age: 24 Year
  Sex: Female

DRUGS (5)
  1. VITAMIN D [Concomitant]
     Active Substance: CHOLECALCIFEROL
     Indication: PRODUCT USED FOR UNKNOWN INDICATION
     Dosage: 2000 IU, QD
     Route: 048
  2. I RON [Concomitant]
     Indication: PRODUCT USED FOR UNKNOWN INDICATION
     Route: 065
  3. FOLIC [Concomitant]
     Indication: PRODUCT USED FOR UNKNOWN INDICATION
     Route: 065
  4. GILENYA [Suspect]
     Active Substance: FINGOLIMOD HYDROCHLORIDE
     Dosage: 0.5 MG, UNK
     Route: 048
     Dates: start: 20120712, end: 20131010
  5. DICLECTIN [Concomitant]
     Active Substance: DOXYLAMINE\PYRIDOXINE
     Indication: PRODUCT USED FOR UNKNOWN INDICATION
     Route: 065

REACTIONS (8)
  - Normal newborn [Unknown]
  - Muscle spasticity [Recovering/Resolving]
  - Delivery [Unknown]
  - Multiple sclerosis relapse [Recovering/Resolving]
  - Hypoaesthesia [Recovering/Resolving]
  - Maternal exposure before pregnancy [Unknown]
  - Paraplegia [Recovering/Resolving]
  - Pre-eclampsia [Unknown]

NARRATIVE: CASE EVENT DATE: 201406
